FAERS Safety Report 13354409 (Version 2)
Quarter: 2017Q2

REPORT INFORMATION
  Report Type: Report from Study
  Country: BR (occurrence: BR)
  Receive Date: 20170321
  Receipt Date: 20170412
  Transmission Date: 20170830
  Serious: Yes (Hospitalization, Other)
  Sender: FDA-Public Use
  Company Number: PHHY2016BR098515

PATIENT
  Sex: Female
  Weight: 57 kg

DRUGS (3)
  1. EBIX [Concomitant]
     Active Substance: MEMANTINE HYDROCHLORIDE
     Indication: PRODUCT USED FOR UNKNOWN INDICATION
     Dosage: 20 MG, UNK
     Route: 065
  2. EXELON PATCH [Suspect]
     Active Substance: RIVASTIGMINE
     Indication: DEMENTIA
     Dosage: 9.5 MG, PATCH 10 (CM2), QD
     Route: 062
     Dates: start: 2014
  3. EXELON PATCH [Suspect]
     Active Substance: RIVASTIGMINE
     Indication: AMNESIA
     Dosage: 13.3 MG, PATCH 15 (CM2) QD
     Route: 062

REACTIONS (7)
  - Femur fracture [Recovering/Resolving]
  - Mobility decreased [Unknown]
  - Peripheral venous disease [Unknown]
  - Fall [Recovering/Resolving]
  - Abasia [Unknown]
  - Decreased activity [Unknown]
  - Weight decreased [Unknown]
